FAERS Safety Report 8232974-5 (Version None)
Quarter: 2012Q1

REPORT INFORMATION
  Report Type: 
  Country: None (occurrence: None)
  Receive Date: 20120326
  Receipt Date: 20120314
  Transmission Date: 20120608
  Serious: Yes (Other)
  Sender: FDA-Public Use
  Company Number: PE-BRISTOL-MYERS SQUIBB COMPANY-16457392

PATIENT
  Age: 65 Year
  Sex: Female

DRUGS (1)
  1. IXABEPILONE [Suspect]
     Indication: BREAST CANCER

REACTIONS (2)
  - NEOPLASM MALIGNANT [None]
  - LIVER DISORDER [None]
